FAERS Safety Report 5605902-6 (Version None)
Quarter: 2008Q1

REPORT INFORMATION
  Report Type: 
  Country: None (occurrence: None)
  Receive Date: 20080124
  Receipt Date: 20080124
  Transmission Date: 20080703
  Serious: Yes (Other)
  Sender: FDA-Public Use
  Company Number: None

PATIENT
  Age: 71 Year
  Sex: Male
  Weight: 85.2762 kg

DRUGS (1)
  1. VYTORIN [Suspect]
     Indication: BLOOD CHOLESTEROL
     Dosage: 1 TABLET DAILY
     Dates: start: 20071119, end: 20071224

REACTIONS (4)
  - LOSS OF CONTROL OF LEGS [None]
  - MYALGIA [None]
  - PAIN IN EXTREMITY [None]
  - STOMACH DISCOMFORT [None]
